FAERS Safety Report 22649185 (Version 1)
Quarter: 2023Q2

REPORT INFORMATION
  Report Type: Spontaneous
  Country: US (occurrence: US)
  Receive Date: 20230628
  Receipt Date: 20230628
  Transmission Date: 20230721
  Serious: No
  Sender: FDA-Public Use
  Company Number: US-BAUSCH-BL-2023-009621

PATIENT
  Age: 25 Year
  Sex: Female

DRUGS (2)
  1. ALTRENO [Suspect]
     Active Substance: TRETINOIN
     Indication: Product used for unknown indication
     Route: 065
     Dates: start: 20230610, end: 20230620
  2. ALTRENO [Suspect]
     Active Substance: TRETINOIN

REACTIONS (2)
  - Drug hypersensitivity [Not Recovered/Not Resolved]
  - Product packaging quantity issue [Unknown]

NARRATIVE: CASE EVENT DATE: 20230601
